FAERS Safety Report 14683206 (Version 1)
Quarter: 2018Q1

REPORT INFORMATION
  Report Type: Spontaneous
  Country: US (occurrence: US)
  Receive Date: 20180326
  Receipt Date: 20180326
  Transmission Date: 20180509
  Serious: Yes (Other)
  Sender: FDA-Public Use
  Company Number: None

PATIENT
  Age: 59 Year
  Sex: Female
  Weight: 87.54 kg

DRUGS (1)
  1. LEVOMILNACIPRAN 20-80MG DAILY [Suspect]
     Active Substance: LEVOMILNACIPRAN
     Indication: DEPRESSION
     Dosage: DOSE - 20-80 MG
     Route: 048
     Dates: start: 2017, end: 2018

REACTIONS (5)
  - Myalgia [None]
  - Muscle twitching [None]
  - Pain in extremity [None]
  - Myofascial pain syndrome [None]
  - Pain [None]

NARRATIVE: CASE EVENT DATE: 20170725
